FAERS Safety Report 7733167-8 (Version None)
Quarter: 2011Q3

REPORT INFORMATION
  Report Type: 
  Country: None (occurrence: None)
  Receive Date: 20110902
  Receipt Date: 20110902
  Transmission Date: 20111222
  Serious: Yes (Other)
  Sender: FDA-Public Use
  Company Number: None

PATIENT
  Sex: Female
  Weight: 77.1115 kg

DRUGS (2)
  1. ATENOLOL [Suspect]
     Indication: HYPERTENSION
     Dosage: DAILY
     Dates: start: 20070101, end: 20080101
  2. ATENOLOL [Suspect]
     Indication: HYPERTENSION
     Dosage: DAILY
     Dates: start: 20100101

REACTIONS (12)
  - DYSSTASIA [None]
  - NIGHTMARE [None]
  - SCIATICA [None]
  - PAIN IN EXTREMITY [None]
  - BACK PAIN [None]
  - PAIN [None]
  - ABASIA [None]
  - MUSCLE SPASMS [None]
  - RENAL FAILURE CHRONIC [None]
  - PARAESTHESIA [None]
  - HYPOAESTHESIA [None]
  - BLOOD POTASSIUM DECREASED [None]
